FAERS Safety Report 5600750-5 (Version None)
Quarter: 2008Q1

REPORT INFORMATION
  Report Type: 
  Country: None (occurrence: None)
  Receive Date: 20080123
  Receipt Date: 20080116
  Transmission Date: 20080703
  Serious: Yes (Other)
  Sender: FDA-Public Use
  Company Number: US-MERCK-0706USA00454

PATIENT
  Age: 56 Year
  Sex: Female

DRUGS (2)
  1. FOSAMAX [Suspect]
     Indication: OSTEOPOROSIS
     Route: 048
     Dates: start: 19980101, end: 20010901
  2. FOSAMAX [Suspect]
     Route: 048
     Dates: start: 20010901, end: 20060501

REACTIONS (5)
  - CATARACT [None]
  - CONVULSION [None]
  - ORAL INFECTION [None]
  - OSTEONECROSIS [None]
  - SINUSITIS [None]
